FAERS Safety Report 21116922 (Version 2)
Quarter: 2022Q3

REPORT INFORMATION
  Report Type: Spontaneous
  Country: US (occurrence: US)
  Receive Date: 20220722
  Receipt Date: 20220804
  Transmission Date: 20221026
  Serious: Yes (Other)
  Sender: FDA-Public Use
  Company Number: US-TEVA-2022-US-2055650

PATIENT
  Age: 67 Year
  Sex: Female

DRUGS (3)
  1. TRIAMCINOLONE [Suspect]
     Active Substance: TRIAMCINOLONE
     Indication: Cystoid macular oedema
     Dosage: THE PATIENT RECEIVED TREATMENT WITH INJECTION OF SUB-TENON TRIAMCINOLONE
     Route: 050
  2. IODINE I-125 [Suspect]
     Active Substance: IODINE I-125
     Indication: Choroid melanoma
     Dosage: SHE UNDERWENT IODINE-125 PBT TREATMENT AND RECEIVED TOTAL RADIATION DOSE OF 85GY TO THE DEPTH OF ...
     Route: 065
  3. BEVACIZUMAB [Suspect]
     Active Substance: BEVACIZUMAB
     Indication: Cystoid macular oedema
     Dosage: SHE RECEIVED THREE INJECTIONS OF INTRAVITREAL BEVACIZUMAB MONTHLY.
     Route: 050

REACTIONS (4)
  - Radiation retinopathy [Recovering/Resolving]
  - Drug ineffective [Unknown]
  - Cystoid macular oedema [Recovered/Resolved]
  - Visual impairment [Recovering/Resolving]
